FAERS Safety Report 4391131-3 (Version None)
Quarter: 2004Q2

REPORT INFORMATION
  Report Type: 
  Country: None (occurrence: None)
  Receive Date: 20040621
  Receipt Date: 20040219
  Transmission Date: 20050107
  Serious: Yes (Other)
  Sender: FDA-Public Use
  Company Number: USA-2003-0009613

PATIENT
  Age: 48 Year
  Sex: Male
  Weight: 80.7 kg

DRUGS (6)
  1. OXYCONTIN [Suspect]
  2. NEURONTIN [Concomitant]
  3. CELEXA [Concomitant]
  4. PROVERA [Concomitant]
  5. CLONAZEPAM [Concomitant]
  6. DURAGESIC [Concomitant]

REACTIONS (15)
  - ABDOMINAL PAIN [None]
  - ANGER [None]
  - ANXIETY [None]
  - DEPRESSION [None]
  - DRUG DEPENDENCE [None]
  - DRUG WITHDRAWAL SYNDROME [None]
  - DYSKINESIA [None]
  - DYSPHAGIA [None]
  - FATIGUE [None]
  - INCREASED APPETITE [None]
  - IRRITABILITY [None]
  - NAUSEA [None]
  - NERVOUSNESS [None]
  - PAIN [None]
  - PAIN IN EXTREMITY [None]
